FAERS Safety Report 7399213-9 (Version None)
Quarter: 2011Q1

REPORT INFORMATION
  Report Type: 
  Country: None (occurrence: None)
  Receive Date: 20110328
  Receipt Date: 20110316
  Transmission Date: 20110831
  Serious: Yes (Life-Threatening)
  Sender: FDA-Public Use
  Company Number: DSJ-2011-01265

PATIENT
  Age: 78 Year
  Sex: Male
  Weight: 65 kg

DRUGS (12)
  1. SPIRIVA [Concomitant]
  2. CLARITHY (CLARITHROMYCIN) [Concomitant]
  3. CEVIMELINE HYDROCHLORIDE [Suspect]
     Indication: DRY MOUTH
     Dosage: 90 MG (30 MG, 3 IN 1 D), PER ORAL
     Route: 048
     Dates: start: 20060131, end: 20100608
  4. ISODINE [Concomitant]
  5. DIOVAN [Concomitant]
  6. ADOAIR )FLUTICASONE PROPIONATE, SALMETEROL XINAFOATE) [Concomitant]
  7. CONIEL (BENDIPINE HYDROCHLORIDE) [Concomitant]
  8. TAKEPRON OD (LANSOPRAZOLE) [Concomitant]
  9. CIBENOL (CIBENZOLINE SUCCINATE) [Concomitant]
  10. THEO-DUR [Concomitant]
  11. LIVALO (ITAVASTATIN CALCIUM) [Concomitant]
  12. WARFARIN SODIUM [Concomitant]

REACTIONS (2)
  - INTERSTITIAL LUNG DISEASE [None]
  - CONCOMITANT DISEASE AGGRAVATED [None]
